FAERS Safety Report 15421311 (Version 2)
Quarter: 2019Q1

REPORT INFORMATION
  Report Type: Report from Study
  Country: US (occurrence: US)
  Receive Date: 20180924
  Receipt Date: 20190221
  Transmission Date: 20190417
  Serious: No
  Sender: FDA-Public Use
  Company Number: PHEH2018US039516

PATIENT
  Sex: Female

DRUGS (2)
  1. COSENTYX [Suspect]
     Active Substance: SECUKINUMAB
     Indication: PSORIASIS
     Route: 058
  2. COSENTYX [Suspect]
     Active Substance: SECUKINUMAB
     Dosage: UNK
     Route: 065
     Dates: start: 20190215

REACTIONS (7)
  - Bone pain [Unknown]
  - Myalgia [Unknown]
  - Dizziness [Unknown]
  - Influenza like illness [Unknown]
  - Fatigue [Unknown]
  - Paraesthesia [Unknown]
  - Injection site pain [Unknown]
